FAERS Safety Report 11444881 (Version 1)
Quarter: 2015Q3

REPORT INFORMATION
  Report Type: Spontaneous
  Country: US (occurrence: None)
  Receive Date: 20150831
  Receipt Date: 20150831
  Transmission Date: 20151125
  Serious: No
  Sender: FDA-Public Use
  Company Number: None

PATIENT
  Age: 73 Year
  Sex: Female
  Weight: 67.13 kg

DRUGS (15)
  1. ROTIGOTINE TRANSDERMAL PATCH (NEUPRO) [Concomitant]
  2. SENNA-S [Concomitant]
     Active Substance: DOCUSATE SODIUM\SENNOSIDES
  3. K2 MK7 [Concomitant]
  4. RYTARY [Suspect]
     Active Substance: CARBIDOPA\LEVODOPA
     Indication: PARKINSON^S DISEASE
     Dosage: 3 CAPS THREE TIMES DAILY TAKEN BY MOUTH
     Route: 048
     Dates: start: 201503, end: 201504
  5. D3 [Concomitant]
     Active Substance: 25-HYDROXYCHOLECALCIFEROL, 5-TRANS-
  6. UBIQUINAL [Concomitant]
  7. CARBIDOPA/LEVADOPA (SINEMET) [Concomitant]
  8. ALLEGRA [Concomitant]
     Active Substance: FEXOFENADINE HYDROCHLORIDE
  9. COOL-RITE STOOL SOFTENER [Concomitant]
  10. BIO-CITRATE MAGNESIUM [Concomitant]
  11. ALGAE OMEGA 3 [Concomitant]
  12. LUTEIN [Concomitant]
     Active Substance: LUTEIN
  13. KAL NADH [Concomitant]
  14. FAMOTIDINE. [Concomitant]
     Active Substance: FAMOTIDINE
  15. CARBIDOPA (LODOSYN) [Concomitant]

REACTIONS (6)
  - Crying [None]
  - Hallucination, visual [None]
  - Drug effect decreased [None]
  - Paranoia [None]
  - Depression [None]
  - Libido increased [None]

NARRATIVE: CASE EVENT DATE: 20150410
